FAERS Safety Report 24706150 (Version 1)
Quarter: 2024Q4

REPORT INFORMATION
  Report Type: Spontaneous
  Country: US (occurrence: None)
  Receive Date: 20241206
  Receipt Date: 20241206
  Transmission Date: 20250114
  Serious: Yes (Hospitalization)
  Sender: Public
  Company Number: None

PATIENT
  Sex: Female
  Weight: 50.8 kg

DRUGS (1)
  1. VINCRISTINE SULFATE [Suspect]
     Active Substance: VINCRISTINE SULFATE

REACTIONS (5)
  - Urinary tract infection [None]
  - Urine output decreased [None]
  - Suprapubic pain [None]
  - Device dislocation [None]
  - Post procedural complication [None]

NARRATIVE: CASE EVENT DATE: 20240304
